FAERS Safety Report 4847220-X (Version None)
Quarter: 2005Q4

REPORT INFORMATION
  Report Type: 
  Country: None (occurrence: None)
  Receive Date: 20051207
  Receipt Date: 20051031
  Transmission Date: 20060501
  Serious: Yes (Life-Threatening, Other)
  Sender: FDA-Public Use
  Company Number: 2005-07-1274

PATIENT
  Age: 37 Year
  Sex: Female
  Weight: 159.1 kg

DRUGS (7)
  1. PAXIL [Suspect]
     Indication: DEPRESSION
     Dosage: 20MG PER DAY
     Route: 048
     Dates: end: 20050712
  2. LITHIUM CARBONATE [Suspect]
     Indication: BIPOLAR DISORDER
     Dosage: 150MG PER DAY
     Route: 048
     Dates: end: 20050712
  3. PEG-INTRON [Concomitant]
     Indication: HEPATITIS C
     Dosage: 150MCG WEEKLY
     Route: 058
     Dates: start: 20050509
  4. RIBAVIRIN [Concomitant]
     Indication: HEPATITIS C
     Dosage: 1200MG PER DAY
     Route: 048
     Dates: start: 20050509
  5. CARDIZEM [Concomitant]
     Dosage: 30MG UNKNOWN
     Route: 048
  6. MAXALT [Concomitant]
     Dosage: 5MG UNKNOWN
     Route: 048
  7. VICODIN [Concomitant]
     Route: 048

REACTIONS (6)
  - DEHYDRATION [None]
  - DIZZINESS [None]
  - DRUG WITHDRAWAL SYNDROME [None]
  - DYSPNOEA [None]
  - HALLUCINATION [None]
  - SUICIDAL IDEATION [None]
